FAERS Safety Report 14840621 (Version 1)
Quarter: 2018Q2

REPORT INFORMATION
  Report Type: Spontaneous
  Country: US (occurrence: US)
  Receive Date: 20180417
  Receipt Date: 20180417
  Transmission Date: 20180711
  Serious: Yes (Other)
  Sender: FDA-Public Use
  Company Number: None

PATIENT
  Age: 9 Year
  Sex: Male
  Weight: 33.75 kg

DRUGS (2)
  1. ATOMOXETINE. [Suspect]
     Active Substance: ATOMOXETINE HYDROCHLORIDE
     Indication: ATTENTION DEFICIT/HYPERACTIVITY DISORDER
     Route: 048
     Dates: start: 20180201, end: 20180417
  2. GUANFACINE 1MG - 1/2 IN AM, 1 IN PM [Concomitant]
     Dates: start: 20160219, end: 20180417

REACTIONS (4)
  - Fatigue [None]
  - Therapeutic response shortened [None]
  - Educational problem [None]
  - Product substitution issue [None]

NARRATIVE: CASE EVENT DATE: 20180301
